FAERS Safety Report 17707668 (Version 1)
Quarter: 2020Q2

REPORT INFORMATION
  Report Type: Spontaneous
  Country: SE (occurrence: SE)
  Receive Date: 20200424
  Receipt Date: 20200424
  Transmission Date: 20200714
  Serious: Yes (Other)
  Sender: FDA-Public Use
  Company Number: SE-PURDUE-GBR-2020-0076339

PATIENT
  Age: 32 Year
  Sex: Female

DRUGS (6)
  1. NON-PMN MORPHINE SULFATE [Suspect]
     Active Substance: MORPHINE SULFATE
     Indication: SPINAL ANAESTHESIA
     Dosage: UNK (0.4 MG/ML,100 MICORGRAM)
     Route: 037
  2. BUPIVACAINE. [Suspect]
     Active Substance: BUPIVACAINE
     Indication: EPIDURAL ANAESTHESIA
     Dosage: 10 ML, UNK (1 MG/ML IN VOLUMES OF 10 ML ADMINISTERED IN MINIMUM TIME LAPS OF 60 MIN)
     Route: 040
  3. GLUCOSE [Concomitant]
     Active Substance: DEXTROSE
     Dosage: 5 MG/ML
  4. BUPIVACAINE. [Suspect]
     Active Substance: BUPIVACAINE
     Indication: SPINAL ANAESTHESIA
     Dosage: 13 MG, UNK
     Route: 037
  5. FENTANYL. [Suspect]
     Active Substance: FENTANYL
     Indication: SPINAL ANAESTHESIA
     Dosage: 25 MCG, UNK
     Route: 037
  6. SUFENTANIL [Suspect]
     Active Substance: SUFENTANIL
     Indication: EPIDURAL ANAESTHESIA
     Dosage: 10 ML, UNK (0.5 MCG/ML IN VOLUMES OF 10 ML ADMINISTERED IN MINIMUM TIME LAPS OF 60 MIN)
     Route: 040

REACTIONS (4)
  - Respiratory depression [Recovered/Resolved]
  - Loss of consciousness [Recovered/Resolved]
  - Maternal exposure during pregnancy [Recovered/Resolved]
  - Muscular weakness [Recovered/Resolved]
